FAERS Safety Report 10881717 (Version 1)
Quarter: 2015Q1

REPORT INFORMATION
  Report Type: Spontaneous
  Country: US (occurrence: US)
  Receive Date: 20150303
  Receipt Date: 20150303
  Transmission Date: 20150721
  Serious: No
  Sender: FDA-Public Use
  Company Number: US-BAYER-2015-031541

PATIENT
  Age: 44 Year
  Sex: Female

DRUGS (1)
  1. CLIMARA [Suspect]
     Active Substance: ESTRADIOL
     Indication: HORMONE REPLACEMENT THERAPY
     Dosage: 0.1 MG, OW
     Route: 062

REACTIONS (6)
  - Drug ineffective [None]
  - Hot flush [None]
  - Alopecia [None]
  - Breast mass [Recovered/Resolved]
  - Onychoclasis [None]
  - Incorrect product storage [None]

NARRATIVE: CASE EVENT DATE: 201402
